FAERS Safety Report 5420536-4 (Version None)
Quarter: 2007Q3

REPORT INFORMATION
  Report Type: 
  Country: None (occurrence: None)
  Receive Date: 20070821
  Receipt Date: 20070104
  Transmission Date: 20080115
  Serious: No
  Sender: FDA-Public Use
  Company Number: US-KINGPHARMUSA00001-K200700006

PATIENT

DRUGS (3)
  1. CYTOMEL [Suspect]
     Indication: HYPOTHYROIDISM
     Dosage: UNK, QD
     Route: 048
     Dates: start: 19780101
  2. ACTIVELLA     /00876401/ [Concomitant]
     Indication: HORMONE THERAPY
     Dosage: UNK, QD
     Route: 048
  3. MAXZIDE [Concomitant]
     Indication: DIURETIC THERAPY
     Dosage: UNK, PRN
     Route: 048

REACTIONS (2)
  - DEPRESSION [None]
  - PARANOIA [None]
